FAERS Safety Report 4817623-8 (Version None)
Quarter: 2005Q4

REPORT INFORMATION
  Report Type: 
  Country: None (occurrence: None)
  Receive Date: 20051019
  Receipt Date: 20040909
  Transmission Date: 20060501
  Serious: Yes (Other)
  Sender: FDA-Public Use
  Company Number: PHEH2004US09028

PATIENT
  Age: 64 Year
  Sex: Female
  Weight: 56.2 kg

DRUGS (11)
  1. MIACALCIN [Suspect]
     Indication: OSTEOPOROSIS
     Dosage: 200 IU ALTERNATE NOSTRIL DAY, INTRANASAL
     Dates: start: 20040519, end: 20040522
  2. LOPRESSOR [Concomitant]
  3. TRAZODONE HCL [Concomitant]
  4. ZOCOR [Concomitant]
  5. PREVACID [Concomitant]
  6. ASPIRIN [Concomitant]
  7. MOBIC [Concomitant]
  8. VITAMIN E [Concomitant]
  9. KLONOPIN [Concomitant]
  10. CALCIUM W/VITAMIN D NOS (CALCIUM, VITAMIN D NOS) [Concomitant]
  11. ULTRACET [Concomitant]

REACTIONS (1)
  - ANGINA PECTORIS [None]
